FAERS Safety Report 14462438 (Version 1)
Quarter: 2018Q1

REPORT INFORMATION
  Report Type: Other
  Country: US (occurrence: US)
  Receive Date: 20180130
  Receipt Date: 20180130
  Transmission Date: 20180509
  Serious: No
  Sender: FDA-Public Use
  Company Number: US-ACORDA-ACO_144434_2017

PATIENT
  Age: 57 Year
  Sex: Female

DRUGS (2)
  1. AMPYRA [Suspect]
     Active Substance: DALFAMPRIDINE
     Indication: GAIT DISTURBANCE
     Dosage: UNK
     Route: 065
  2. PLEGRIDY [Suspect]
     Active Substance: PEGINTERFERON BETA-1A
     Indication: MULTIPLE SCLEROSIS
     Dosage: 125 MCG, EVERY 14 DAYS
     Route: 058
     Dates: start: 20171020

REACTIONS (10)
  - Fall [Recovered/Resolved]
  - Condition aggravated [Unknown]
  - Head injury [Not Recovered/Not Resolved]
  - Contusion [Not Recovered/Not Resolved]
  - Constipation [Unknown]
  - Depressed mood [Unknown]
  - Balance disorder [Not Recovered/Not Resolved]
  - Headache [Recovered/Resolved]
  - Multiple sclerosis [Unknown]
  - Dizziness [Recovered/Resolved]

NARRATIVE: CASE EVENT DATE: 20171115
